FAERS Safety Report 6558658-7 (Version None)
Quarter: 2010Q1

REPORT INFORMATION
  Report Type: 
  Country: None (occurrence: None)
  Receive Date: 20100128
  Receipt Date: 20100128
  Transmission Date: 20100710
  Serious: Yes (Other)
  Sender: FDA-Public Use
  Company Number: None

PATIENT
  Age: 54 Year
  Sex: Female
  Weight: 53.0709 kg

DRUGS (3)
  1. PREVPAC [Suspect]
     Indication: HELICOBACTER INFECTION
     Dosage: ONE BID ORAL
     Route: 048
     Dates: start: 20091216
  2. PREVPAC [Suspect]
     Indication: HELICOBACTER INFECTION
     Dosage: ONE BID ORAL
     Route: 048
     Dates: start: 20091217
  3. PREVPAC [Suspect]
     Indication: HELICOBACTER INFECTION
     Dosage: ONE BID ORAL
     Route: 048
     Dates: start: 20091218

REACTIONS (4)
  - ABDOMINAL PAIN UPPER [None]
  - DYSGEUSIA [None]
  - NAUSEA [None]
  - POOR QUALITY SLEEP [None]
